FAERS Safety Report 10595489 (Version 26)
Quarter: 2017Q2

REPORT INFORMATION
  Report Type: Spontaneous
  Country: US (occurrence: US)
  Receive Date: 20141120
  Receipt Date: 20170406
  Transmission Date: 20170829
  Serious: Yes (Hospitalization, Other)
  Sender: FDA-Public Use
  Company Number: US-PFIZER INC-2014320069

PATIENT
  Age: 74 Year
  Sex: Male
  Weight: 122 kg

DRUGS (12)
  1. LYRICA [Suspect]
     Active Substance: PREGABALIN
     Indication: BURNING SENSATION
     Dosage: UNK, AS NEEDED
  2. LYRICA [Suspect]
     Active Substance: PREGABALIN
     Indication: PAIN
     Dosage: 75MG 2 DAILY
     Dates: end: 201502
  3. LYRICA [Suspect]
     Active Substance: PREGABALIN
     Indication: NEUROPATHY PERIPHERAL
     Dosage: 100 MG, 4X/DAY
  4. INSULIN [Concomitant]
     Active Substance: INSULIN NOS
     Indication: DIABETES MELLITUS
     Dosage: UNK
  5. LISINOPRIL. [Concomitant]
     Active Substance: LISINOPRIL
     Dosage: UNK
  6. HYDROCHLOROTHIAZIDE. [Concomitant]
     Active Substance: HYDROCHLOROTHIAZIDE
     Dosage: UNK
  7. GLIMEPIRIDE. [Concomitant]
     Active Substance: GLIMEPIRIDE
     Indication: DIABETES MELLITUS
     Dosage: UNK
  8. VIAGRA [Concomitant]
     Active Substance: SILDENAFIL CITRATE
     Indication: SEXUAL DYSFUNCTION
     Dosage: 100 MG, AS NEEDED
     Route: 048
  9. LYRICA [Suspect]
     Active Substance: PREGABALIN
     Indication: DIABETIC NEUROPATHY
     Dosage: 100 MG, 2X/DAY(ONE IN THE NIGHT AND ONE IN THE MORNING)
  10. NEURONTIN [Concomitant]
     Active Substance: GABAPENTIN
     Dosage: UNK
  11. GLIPERIDE [Concomitant]
     Active Substance: GLIMEPIRIDE
     Indication: DIABETES MELLITUS
     Dosage: 4 MG, 2X/DAY AT BREAKFAST AND DINNER
  12. LYRICA [Suspect]
     Active Substance: PREGABALIN
     Indication: PAIN IN EXTREMITY
     Dosage: 75 MG, 2X/DAY

REACTIONS (29)
  - Feeling hot [Unknown]
  - Gait disturbance [Not Recovered/Not Resolved]
  - Sleep disorder [Unknown]
  - Muscle spasms [Recovered/Resolved]
  - Pain in extremity [Unknown]
  - Drug dispensing error [Unknown]
  - Fall [Not Recovered/Not Resolved]
  - Hypersomnia [Unknown]
  - Malaise [Unknown]
  - Headache [Recovered/Resolved]
  - Sleep apnoea syndrome [Unknown]
  - Product use issue [Unknown]
  - Diabetic coma [Unknown]
  - Neuropathy peripheral [Not Recovered/Not Resolved]
  - Skin discolouration [Unknown]
  - Insomnia [Recovered/Resolved]
  - Weight increased [Recovering/Resolving]
  - Dementia [Not Recovered/Not Resolved]
  - Nausea [Unknown]
  - Somnolence [Not Recovered/Not Resolved]
  - Burning sensation [Not Recovered/Not Resolved]
  - Upper respiratory tract infection [Unknown]
  - Drug ineffective [Not Recovered/Not Resolved]
  - Back pain [Not Recovered/Not Resolved]
  - Blood glucose decreased [Unknown]
  - Viral upper respiratory tract infection [Not Recovered/Not Resolved]
  - Fatigue [Unknown]
  - Pain [Not Recovered/Not Resolved]
  - Insomnia [Unknown]

NARRATIVE: CASE EVENT DATE: 2015
